FAERS Safety Report 24763986 (Version 1)
Quarter: 2024Q4

REPORT INFORMATION
  Report Type: Spontaneous
  Country: CN (occurrence: CN)
  Receive Date: 20241223
  Receipt Date: 20241223
  Transmission Date: 20250114
  Serious: Yes (Hospitalization, Other)
  Sender: NOVARTIS
  Company Number: CN-002147023-NVSC2024CN239302

PATIENT
  Age: 51 Year
  Sex: Male
  Weight: 64 kg

DRUGS (1)
  1. OXCARBAZEPINE [Suspect]
     Active Substance: OXCARBAZEPINE
     Indication: Multiple sclerosis
     Dosage: 300 MG, BID
     Route: 048
     Dates: start: 20241130, end: 20241202

REACTIONS (11)
  - Drug eruption [Recovering/Resolving]
  - Rash maculo-papular [Recovering/Resolving]
  - Laryngeal oedema [Recovering/Resolving]
  - Mucosal ulceration [Recovering/Resolving]
  - Ear swelling [Recovering/Resolving]
  - Dysphagia [Recovering/Resolving]
  - Erythema [Recovering/Resolving]
  - Rash erythematous [Recovering/Resolving]
  - Swelling face [Recovering/Resolving]
  - Mucosal erosion [Recovering/Resolving]
  - Off label use [Unknown]

NARRATIVE: CASE EVENT DATE: 20241130
